FAERS Safety Report 15407007 (Version 1)
Quarter: 2018Q3

REPORT INFORMATION
  Report Type: Spontaneous
  Country: US (occurrence: US)
  Receive Date: 20180919
  Receipt Date: 20180919
  Transmission Date: 20181010
  Serious: Yes (Hospitalization)
  Sender: FDA-Public Use
  Company Number: None

PATIENT
  Age: 81 Year
  Sex: Male

DRUGS (10)
  1. AFINITOR [Suspect]
     Active Substance: EVEROLIMUS
     Indication: NEOPLASM MALIGNANT
     Route: 048
     Dates: start: 20180509
  2. BUMETANIDE 1MG [Concomitant]
     Active Substance: BUMETANIDE
  3. WARFARIN 2.5MG [Concomitant]
     Active Substance: WARFARIN
  4. DUTASTERIDE 0.5MG [Concomitant]
  5. KLOR?CON 10MEQ [Concomitant]
  6. PAROXETINE 20MG [Concomitant]
     Active Substance: PAROXETINE
  7. HYDRALAZINE 50MG [Concomitant]
  8. METOPROL 25MG [Concomitant]
  9. PROTONIX [Concomitant]
     Active Substance: PANTOPRAZOLE SODIUM
  10. SIMVASTATIN 40MG [Concomitant]
     Active Substance: SIMVASTATIN

REACTIONS (1)
  - Peripheral swelling [None]

NARRATIVE: CASE EVENT DATE: 20180831
